FAERS Safety Report 9516187 (Version 1)
Quarter: 2013Q1

REPORT INFORMATION
  Report Type: Spontaneous
  Country: US (occurrence: None)
  Receive Date: 20130305
  Receipt Date: 20130305
  Transmission Date: 20140127
  Serious: Yes (Hospitalization)
  Sender: FDA-Public Use
  Company Number: 163-21880-12120298

PATIENT
  Age: 81 Year
  Sex: Male
  Weight: 77.11 kg

DRUGS (11)
  1. REVLIMID (LENALIDOMIDE) (CAPSULES) [Suspect]
     Indication: CHRONIC LYMPHOCYTIC LEUKAEMIA
     Dosage: 2.5 MG, 1 IN 1 D, PO
     Route: 048
     Dates: start: 201204
  2. AMIODARONE (AMIODARONE) [Concomitant]
  3. INSULIN (INSULIN) [Concomitant]
  4. ACYCLOVIR (ACICLOVIR) (ACICLOVIR) [Concomitant]
  5. TRIMETHOPRIM (TRIMETHOPRIM) [Concomitant]
  6. SULFAMETHOXAZOLE (SULFAMETHOXAZOLE) [Concomitant]
  7. ASPIRIN (ACETYLSALICYLIC ACID) [Concomitant]
  8. GABAPENTIN (GABAPENTIN) [Concomitant]
  9. ALLOPURINOL [Concomitant]
  10. TAMSULOSIN (TAMSULOSIN) [Concomitant]
  11. SIMVASTATIN (SIMVASTATIN) [Concomitant]

REACTIONS (1)
  - Septic shock [None]
